FAERS Safety Report 18034054 (Version 2)
Quarter: 2020Q3

REPORT INFORMATION
  Report Type: Report from Study
  Country: US (occurrence: US)
  Receive Date: 20200716
  Receipt Date: 20200728
  Transmission Date: 20201103
  Serious: Yes (Other)
  Sender: FDA-Public Use
  Company Number: US-BAUSCH-BL-2020-019966

PATIENT
  Age: 77 Year
  Sex: Male
  Weight: 107.14 kg

DRUGS (15)
  1. XIFAXAN [Suspect]
     Active Substance: RIFAXIMIN
     Dosage: 60 TABLETS FOR 3 DAYS, 8 REFILLS
     Route: 048
     Dates: start: 2020, end: 20200625
  2. FUROSEMIDE. [Concomitant]
     Active Substance: FUROSEMIDE
     Indication: PRODUCT USED FOR UNKNOWN INDICATION
     Dosage: 30 TABLETS 30 DAYS
     Route: 048
     Dates: start: 20200224, end: 2020
  3. XIFAXAN [Suspect]
     Active Substance: RIFAXIMIN
     Indication: HEPATIC ENCEPHALOPATHY
     Dosage: 60 TABLETS 30 DAYS 5 REFILLS
     Route: 048
     Dates: start: 20190121, end: 2019
  4. XIFAXAN [Suspect]
     Active Substance: RIFAXIMIN
     Indication: HEPATIC CIRRHOSIS
     Dosage: 60 TABLETS 30 DAYS 5 REFILLS
     Route: 048
     Dates: start: 20191120
  5. SPIRONOLACTONE. [Concomitant]
     Active Substance: SPIRONOLACTONE
     Dosage: 60 TABLETS FOR 30 DAYS, 5 REFILLS
     Route: 048
     Dates: start: 20200311, end: 2020
  6. FUROSEMIDE. [Concomitant]
     Active Substance: FUROSEMIDE
     Dosage: 30 TABLETS 30 DAYS
     Route: 048
     Dates: start: 20200622
  7. SPIRONOLACTONE. [Concomitant]
     Active Substance: SPIRONOLACTONE
     Dosage: 60 TABLETS FOR 30 DAYS, 5 REFILLS
     Route: 048
     Dates: start: 20200623
  8. XIFAXAN [Suspect]
     Active Substance: RIFAXIMIN
     Dosage: 60 TABLETS FOR 3 DAYS, 8 REFILLS
     Route: 048
     Dates: start: 20200224, end: 202003
  9. SPIRONOLACTONE. [Concomitant]
     Active Substance: SPIRONOLACTONE
     Dosage: 60 TABLETS FOR 30 DAYS, 5 REFILLS
     Route: 048
     Dates: start: 20200224, end: 2020
  10. LACTULOSE. [Concomitant]
     Active Substance: LACTULOSE
     Dosage: 20 GM/30 ML, QUANTITY 2700 ML FOR 30 DAYS (5) REFILLS
     Route: 048
     Dates: start: 20191120
  11. LACTULOSE. [Concomitant]
     Active Substance: LACTULOSE
     Dosage: 20 GM/30 ML, QUANTITY 2700 ML FOR 30 DAYS (5) REFILLS
     Route: 048
     Dates: start: 20200224, end: 2020
  12. XIFAXAN [Suspect]
     Active Substance: RIFAXIMIN
     Route: 048
     Dates: start: 2020
  13. LACTULOSE. [Concomitant]
     Active Substance: LACTULOSE
     Indication: PRODUCT USED FOR UNKNOWN INDICATION
     Route: 048
     Dates: start: 20190121
  14. LACTULOSE. [Concomitant]
     Active Substance: LACTULOSE
     Dosage: 20 GM/30 ML, QUANTITY 2700 ML FOR 30 DAYS (5) REFILLS
     Route: 048
     Dates: start: 20200623
  15. SPIRONOLACTONE. [Concomitant]
     Active Substance: SPIRONOLACTONE
     Indication: PRODUCT USED FOR UNKNOWN INDICATION
     Dosage: 60 TABLETS FOR 30 DAYS, 5 REFILLS
     Route: 048
     Dates: start: 20191120

REACTIONS (15)
  - Memory impairment [Unknown]
  - Haematocrit decreased [Unknown]
  - Mean cell haemoglobin increased [Unknown]
  - Vomiting [Unknown]
  - Haemoglobin decreased [Unknown]
  - Mean cell volume increased [Unknown]
  - Inability to afford medication [Unknown]
  - Blood alkaline phosphatase increased [Unknown]
  - Constipation [Unknown]
  - Insurance issue [Unknown]
  - Therapy interrupted [Unknown]
  - Platelet count decreased [Unknown]
  - Ammonia increased [Unknown]
  - Red blood cell count decreased [Unknown]
  - Blood bilirubin increased [Not Recovered/Not Resolved]

NARRATIVE: CASE EVENT DATE: 2020
